FAERS Safety Report 22626331 (Version 1)
Quarter: 2023Q2

REPORT INFORMATION
  Report Type: Report from Study
  Country: ES (occurrence: ES)
  Receive Date: 20230621
  Receipt Date: 20230621
  Transmission Date: 20230722
  Serious: Yes (Hospitalization)
  Sender: FDA-Public Use
  Company Number: GB-ROCHE-1925461

PATIENT
  Age: 70 Year
  Sex: Male
  Weight: 78.5 kg

DRUGS (12)
  1. PREDNISONE [Suspect]
     Active Substance: PREDNISONE
     Indication: Diffuse large B-cell lymphoma
     Dosage: 100 MILLIGRAM
     Route: 048
     Dates: start: 20170222, end: 20170304
  2. LENALIDOMIDE [Suspect]
     Active Substance: LENALIDOMIDE
     Indication: Diffuse large B-cell lymphoma
     Dosage: 15 MILLIGRAM
     Route: 042
     Dates: start: 20170222, end: 20170304
  3. RITUXIMAB [Suspect]
     Active Substance: RITUXIMAB
     Indication: Diffuse large B-cell lymphoma
     Dosage: 712.5 MILLIGRAM/SQ. METER, Q21D
     Route: 048
     Dates: start: 20170222, end: 20170304
  4. VINCRISTINE [Suspect]
     Active Substance: VINCRISTINE
     Indication: Diffuse large B-cell lymphoma
     Dosage: 2 MILLIGRAM/SQ. METER, Q21D
     Route: 042
     Dates: start: 20170222, end: 20170304
  5. CYCLOPHOSPHAMIDE [Suspect]
     Active Substance: CYCLOPHOSPHAMIDE
     Indication: Diffuse large B-cell lymphoma
     Dosage: 1425 MILLIGRAM/SQ. METER, Q21D
     Route: 042
     Dates: start: 20170222, end: 20170304
  6. DOXORUBICIN [Suspect]
     Active Substance: DOXORUBICIN
     Indication: Diffuse large B-cell lymphoma
     Dosage: 95 MILLIGRAM/SQ. METER, Q21D
     Route: 042
     Dates: start: 20170222, end: 20170304
  7. OMEPRAZOLE [Concomitant]
     Active Substance: OMEPRAZOLE
     Indication: Prophylaxis
     Dosage: UNK
     Route: 065
     Dates: start: 20170304, end: 20170317
  8. DIAZEPAM [Concomitant]
     Active Substance: DIAZEPAM
     Indication: Muscle relaxant therapy
     Dosage: 10 MILLIGRAM, QD
     Route: 065
     Dates: start: 20170228, end: 20170228
  9. VANCOMYCIN [Concomitant]
     Active Substance: VANCOMYCIN
     Dosage: 2 GRAM, BID
     Route: 065
     Dates: start: 20170403
  10. MEROPENEM [Concomitant]
     Active Substance: MEROPENEM
     Indication: Respiratory failure
     Dosage: 1000 MILLIGRAM, QD
     Route: 065
     Dates: start: 20170228
  11. FILGRASTIM [Concomitant]
     Active Substance: FILGRASTIM
     Indication: Prophylaxis
     Dosage: 300 MICROGRAM, QD
     Route: 065
     Dates: start: 20170303, end: 20170305
  12. HALOPERIDOL [Concomitant]
     Active Substance: HALOPERIDOL
     Indication: Prophylaxis
     Dosage: UNK
     Route: 065
     Dates: start: 20170228

REACTIONS (2)
  - Atrial fibrillation [Recovered/Resolved with Sequelae]
  - Respiratory failure [Recovered/Resolved]

NARRATIVE: CASE EVENT DATE: 20170228
